FAERS Safety Report 7023082-X (Version None)
Quarter: 2010Q3

REPORT INFORMATION
  Report Type: 
  Country: None (occurrence: None)
  Receive Date: 20100930
  Receipt Date: 20100922
  Transmission Date: 20110219
  Serious: Yes (Hospitalization, Congenital Anomaly, Other)
  Sender: FDA-Public Use
  Company Number: US-PFIZER INC-2007095293

PATIENT
  Sex: Female
  Weight: 3 kg

DRUGS (6)
  1. ZOLOFT [Suspect]
     Route: 064
     Dates: start: 20040501, end: 20050201
  2. ZOFRAN [Concomitant]
     Indication: NAUSEA
  3. MULTI-VITAMINS [Concomitant]
  4. DILAUDID [Concomitant]
     Indication: HEADACHE
     Dates: start: 20041122
  5. METHYLPREDNISOLONE [Concomitant]
  6. MORPHINE [Concomitant]
     Indication: HEADACHE

REACTIONS (23)
  - ANOMALOUS PULMONARY VENOUS CONNECTION [None]
  - ARRHYTHMIA [None]
  - ATRIAL SEPTAL DEFECT [None]
  - ATRIOVENTRICULAR BLOCK COMPLETE [None]
  - CONGENITAL HYDRONEPHROSIS [None]
  - CROUP INFECTIOUS [None]
  - DRUG EXPOSURE DURING PREGNANCY [None]
  - EAR INFECTION [None]
  - HEART DISEASE CONGENITAL [None]
  - MATERNAL DRUGS AFFECTING FOETUS [None]
  - METABOLIC ALKALOSIS [None]
  - NASOPHARYNGITIS [None]
  - NEONATAL RESPIRATORY DISTRESS SYNDROME [None]
  - OTITIS MEDIA [None]
  - PATENT DUCTUS ARTERIOSUS [None]
  - POST PROCEDURAL COMPLICATION [None]
  - PULMONARY OEDEMA [None]
  - RESPIRATORY TRACT INFECTION [None]
  - SCAR [None]
  - SEPSIS [None]
  - STRABISMUS [None]
  - TRANSIENT TACHYPNOEA OF THE NEWBORN [None]
  - VENTRICULAR SEPTAL DEFECT [None]
